FAERS Safety Report 23926216 (Version 1)
Quarter: 2024Q2

REPORT INFORMATION
  Report Type: Spontaneous
  Country: US (occurrence: None)
  Receive Date: 20240531
  Receipt Date: 20240531
  Transmission Date: 20240715
  Serious: Yes (Death)
  Sender: FDA-Public Use
  Company Number: None

PATIENT
  Age: 78 Year
  Sex: Female

DRUGS (15)
  1. TACROLIMUS [Suspect]
     Active Substance: TACROLIMUS
     Indication: Renal transplant
     Dosage: 2  CAPSULES EV ERY MORNING AND 3 CAPSULES EVERY EVENING BID ORAL?
     Route: 048
     Dates: end: 202405
  2. MELATONIN [Concomitant]
  3. LOSARTAN [Concomitant]
  4. CLOPIDOGREL [Concomitant]
  5. TRAZODONE [Concomitant]
  6. NIFEDIPINE [Concomitant]
  7. ATORVASTATIN [Concomitant]
  8. LEVOTHYROXINE [Concomitant]
  9. TRADJENTA [Concomitant]
     Active Substance: LINAGLIPTIN
  10. MIRALAX [Concomitant]
     Active Substance: POLYETHYLENE GLYCOL 3350
  11. PREDNISONE [Concomitant]
  12. aspirin [Concomitant]
  13. TACROLIMUS [Concomitant]
     Active Substance: TACROLIMUS
  14. DOCUSATE SODIUM\SENNA LEAF [Concomitant]
     Active Substance: DOCUSATE SODIUM\SENNA LEAF
  15. triamcinolone ointment [Concomitant]

REACTIONS (1)
  - Death [None]

NARRATIVE: CASE EVENT DATE: 20240501
